FAERS Safety Report 18489370 (Version 3)
Quarter: 2021Q1

REPORT INFORMATION
  Report Type: Spontaneous
  Country: ES (occurrence: ES)
  Receive Date: 20201111
  Receipt Date: 20210201
  Transmission Date: 20210419
  Serious: Yes (Other)
  Sender: FDA-Public Use
  Company Number: ES-009507513-2011ESP005061

PATIENT
  Age: 25 Year
  Sex: Female

DRUGS (2)
  1. NUVARING [Suspect]
     Active Substance: ETHINYL ESTRADIOL\ETONOGESTREL
     Indication: CONTRACEPTION
     Dosage: 1 RING, QM
     Route: 067
     Dates: start: 20201009, end: 20201030
  2. NUVARING [Suspect]
     Active Substance: ETHINYL ESTRADIOL\ETONOGESTREL
     Dosage: 1 RING, QM
     Route: 067
     Dates: start: 20200128, end: 20201002

REACTIONS (5)
  - Unintended pregnancy [Recovered/Resolved]
  - Abortion induced [Unknown]
  - Pregnancy with contraceptive device [Recovered/Resolved]
  - Abnormal withdrawal bleeding [Unknown]
  - Withdrawal bleed [Unknown]

NARRATIVE: CASE EVENT DATE: 20201003
